FAERS Safety Report 6313706-4 (Version None)
Quarter: 2009Q3

REPORT INFORMATION
  Report Type: 
  Country: None (occurrence: None)
  Receive Date: 20090814
  Receipt Date: 20090806
  Transmission Date: 20100115
  Serious: Yes (Hospitalization)
  Sender: FDA-Public Use
  Company Number: 2008JP005163

PATIENT
  Age: 75 Year
  Sex: Female
  Weight: 48.5 kg

DRUGS (15)
  1. TACROLIMUS CAPSULES(TACROLIMUS CAPSULES)(TACROLIMUS) CAPSULE [Suspect]
     Indication: LUPUS NEPHRITIS
     Dosage: SEE IMAGE
     Route: 048
     Dates: start: 20080905, end: 20080911
  2. TACROLIMUS CAPSULES(TACROLIMUS CAPSULES)(TACROLIMUS) CAPSULE [Suspect]
     Indication: LUPUS NEPHRITIS
     Dosage: SEE IMAGE
     Route: 048
     Dates: start: 20080912, end: 20081016
  3. TACROLIMUS CAPSULES(TACROLIMUS CAPSULES)(TACROLIMUS) CAPSULE [Suspect]
     Indication: LUPUS NEPHRITIS
     Dosage: SEE IMAGE
     Route: 048
     Dates: start: 20081017, end: 20081024
  4. PREDNISOLONE [Suspect]
     Indication: LUPUS NEPHRITIS
     Dosage: SEE IMAGE
     Route: 048
     Dates: start: 20080905, end: 20080911
  5. PREDNISOLONE [Suspect]
     Indication: LUPUS NEPHRITIS
     Dosage: SEE IMAGE
     Route: 048
     Dates: start: 20080912, end: 20080925
  6. PREDNISOLONE [Suspect]
     Indication: LUPUS NEPHRITIS
     Dosage: SEE IMAGE
     Route: 048
     Dates: start: 20080926, end: 20081009
  7. LASIX [Concomitant]
  8. TANATRIL (IMIDAPRIL HYDROCHLORIDE) [Concomitant]
  9. NORVASC [Concomitant]
  10. EPADEL (ETHYL ICOSAPENTATE) [Concomitant]
  11. OMEPRAL (OMEPRAZOLE SODIUM) [Concomitant]
  12. DOXAZOSIN MESYLATE [Concomitant]
  13. NATRIX (INDAPAMIDE) [Concomitant]
  14. FOSAMAC (ALENDRONATE SODIUM) [Concomitant]
  15. DIAMOX (ACETAZOLAMIDE SODIUM) [Concomitant]

REACTIONS (2)
  - BLOOD AMYLASE INCREASED [None]
  - LIPASE INCREASED [None]
